FAERS Safety Report 20216152 (Version 1)
Quarter: 2021Q4

REPORT INFORMATION
  Report Type: Spontaneous
  Country: GB (occurrence: GB)
  Receive Date: 20211222
  Receipt Date: 20211222
  Transmission Date: 20220303
  Serious: Yes (Other)
  Sender: FDA-Public Use
  Company Number: None

PATIENT
  Age: 77 Year
  Sex: Female
  Weight: 61 kg

DRUGS (9)
  1. TRAMADOL [Suspect]
     Active Substance: TRAMADOL
     Dosage: TAKE 1 OR 2 EVERY 4-6 HRS, 50 MG
     Dates: start: 20211115
  2. CHOLECALCIFEROL [Concomitant]
     Active Substance: CHOLECALCIFEROL
     Dosage: 1 DOSAGE FORMS DAILY;
     Dates: start: 20210506
  3. FEXOFENADINE [Concomitant]
     Active Substance: FEXOFENADINE HYDROCHLORIDE
     Dosage: 1 DOSAGE FORMS DAILY; MAXIMUM
     Dates: start: 20200804, end: 20210928
  4. LEVOTHYROXINE [Concomitant]
     Active Substance: LEVOTHYROXINE
     Dosage: 1 DOSAGE FORMS DAILY; EACH MORNING
     Dates: start: 20180918
  5. MORPHINE SULFATE [Concomitant]
     Active Substance: MORPHINE SULFATE
     Dosage: 4 HOURLY, 2.5 MG
     Dates: start: 20211115, end: 20211129
  6. NITROFURANTOIN [Concomitant]
     Active Substance: NITROFURANTOIN
     Dosage: 2 DOSAGE FORMS DAILY;
     Dates: start: 20211007, end: 20211010
  7. PROLIA [Concomitant]
     Active Substance: DENOSUMAB
     Dosage: 1 DOSAGE FORMS
     Dates: start: 20210917
  8. RABEPRAZOLE [Concomitant]
     Active Substance: RABEPRAZOLE
     Dosage: TAKE ONE OR TWO IN THE EVENING
     Dates: start: 20180918
  9. TRIMETHOPRIM [Concomitant]
     Active Substance: TRIMETHOPRIM
     Dosage: 2 DOSAGE FORMS DAILY;
     Dates: start: 20211014, end: 20211021

REACTIONS (1)
  - Chest pain [Recovered/Resolved]

NARRATIVE: CASE EVENT DATE: 20211207
